FAERS Safety Report 9909594 (Version 2)
Quarter: 2014Q1

REPORT INFORMATION
  Report Type: Spontaneous
  Country: TR (occurrence: TR)
  Receive Date: 20140219
  Receipt Date: 20140219
  Transmission Date: 20141002
  Serious: Yes (Hospitalization, Other)
  Sender: FDA-Public Use
  Company Number: TR-SA-2014SA014263

PATIENT
  Age: 26 Year
  Sex: Female

DRUGS (3)
  1. PETHIDINE HYDROCHLORIDE [Suspect]
     Indication: PRODUCT USED FOR UNKNOWN INDICATION
     Route: 030
  2. PETHIDINE HYDROCHLORIDE [Suspect]
     Indication: PRODUCT USED FOR UNKNOWN INDICATION
     Dosage: 5-6 WEEKLY DOSES
     Route: 065
  3. FENTANYL [Suspect]
     Indication: PRODUCT USED FOR UNKNOWN INDICATION
     Dosage: 4 10 MG TRANSDERMAL PATCH
     Route: 062

REACTIONS (10)
  - Respiratory arrest [Recovering/Resolving]
  - Drug abuse [Unknown]
  - Pyrexia [Unknown]
  - Coma [Recovering/Resolving]
  - Pupillary reflex impaired [Recovering/Resolving]
  - Pupil fixed [Recovering/Resolving]
  - Depressed level of consciousness [Recovering/Resolving]
  - Drug dependence [Unknown]
  - Heart rate increased [Unknown]
  - Blood pressure decreased [Unknown]
